FAERS Safety Report 17483495 (Version 4)
Quarter: 2020Q1

REPORT INFORMATION
  Report Type: Spontaneous
  Country: BE (occurrence: BE)
  Receive Date: 20200302
  Receipt Date: 20200309
  Transmission Date: 20200409
  Serious: Yes (Other)
  Sender: FDA-Public Use
  Company Number: BE-PFIZER INC-2020087659

PATIENT
  Age: 69 Year
  Sex: Female
  Weight: 59 kg

DRUGS (9)
  1. DOCETAXEL. [Suspect]
     Active Substance: DOCETAXEL
     Indication: GASTRIC CANCER STAGE III
     Dosage: 87.5 MG, CYCLIC
  2. ACETYLSALICYLIC ACID [Concomitant]
     Active Substance: ASPIRIN
     Indication: DEEP VEIN THROMBOSIS
     Dosage: UNK
  3. OXALIPLATIN. [Suspect]
     Active Substance: OXALIPLATIN
     Indication: GASTRIC CANCER STAGE III
     Dosage: 147.58 MG, CYCLIC
  4. CALCIUM FOLINATE [Suspect]
     Active Substance: LEUCOVORIN CALCIUM
     Indication: ADENOCARCINOMA GASTRIC
     Dosage: 350 MG, CYCLIC
  5. AMIODARONE [Concomitant]
     Active Substance: AMIODARONE
     Dosage: UNK
  6. HYDRALAZINE [Concomitant]
     Active Substance: HYDRALAZINE HYDROCHLORIDE
     Indication: HYPERTENSION
     Dosage: UNK
  7. FLUOROURACIL. [Suspect]
     Active Substance: FLUOROURACIL
     Indication: ADENOCARCINOMA GASTRIC
     Dosage: 4200 MG, CYCLIC
  8. LORAZEPAM. [Concomitant]
     Active Substance: LORAZEPAM
     Dosage: UNK
  9. TINZAPARIN [Concomitant]
     Active Substance: TINZAPARIN
     Indication: DEEP VEIN THROMBOSIS
     Dosage: UNK

REACTIONS (4)
  - Pneumonia staphylococcal [Unknown]
  - Posterior reversible encephalopathy syndrome [Recovered/Resolved with Sequelae]
  - Septic shock [Unknown]
  - Acute kidney injury [Unknown]
